FAERS Safety Report 13355392 (Version 1)
Quarter: 2017Q1

REPORT INFORMATION
  Report Type: Spontaneous
  Country: FR (occurrence: FR)
  Receive Date: 20170321
  Receipt Date: 20170321
  Transmission Date: 20170429
  Serious: Yes (Hospitalization)
  Sender: FDA-Public Use
  Company Number: FR-PFIZER INC-2017112304

PATIENT
  Age: 82 Year
  Sex: Male

DRUGS (9)
  1. VANCOMYCIN HCL [Suspect]
     Active Substance: VANCOMYCIN HYDROCHLORIDE
     Indication: PYELONEPHRITIS
     Dosage: 750 MG, 2X/DAY
     Route: 042
     Dates: start: 20161029, end: 201611
  2. CEFTRIAXONE /00672202/ [Concomitant]
     Active Substance: CEFTRIAXONE
     Indication: PYELONEPHRITIS
     Dosage: UNK
  3. TAZOCILLINE [Suspect]
     Active Substance: PIPERACILLIN SODIUM\TAZOBACTAM SODIUM
     Indication: PYELONEPHRITIS
     Dosage: 4 G, 3X/DAY
     Route: 042
     Dates: start: 20161029, end: 20161114
  4. GENTAMICIN. [Concomitant]
     Active Substance: GENTAMICIN
     Indication: PYELONEPHRITIS
     Dosage: UNK
  5. TAZOCILLINE [Suspect]
     Active Substance: PIPERACILLIN SODIUM\TAZOBACTAM SODIUM
     Dosage: UNK
     Dates: start: 20161120, end: 20161122
  6. CEFOTAXIME /00497602/ [Concomitant]
     Active Substance: CEFOTAXIME SODIUM
     Indication: PYELONEPHRITIS
     Dosage: UNK
     Dates: start: 20161120
  7. IODINE. [Concomitant]
     Active Substance: IODINE
     Indication: COMPUTERISED TOMOGRAM
     Dosage: UNK
     Dates: start: 20161030, end: 20161030
  8. LASILIX /00032601/ [Concomitant]
     Active Substance: FUROSEMIDE
     Dosage: UNK
  9. VANCOMYCIN HCL [Suspect]
     Active Substance: VANCOMYCIN HYDROCHLORIDE
     Dosage: 875 MG, 2X/DAY
     Route: 042
     Dates: start: 20161111, end: 20161114

REACTIONS (2)
  - Acute kidney injury [Recovered/Resolved]
  - Nephropathy [Recovered/Resolved]

NARRATIVE: CASE EVENT DATE: 20161111
